FAERS Safety Report 6065181-5 (Version None)
Quarter: 2009Q1

REPORT INFORMATION
  Report Type: 
  Country: None (occurrence: None)
  Receive Date: 20090130
  Receipt Date: 20090119
  Transmission Date: 20090719
  Serious: Yes (Life-Threatening, Hospitalization)
  Sender: FDA-Public Use
  Company Number: 09-001

PATIENT
  Age: 1 Day
  Sex: Female
  Weight: 3.052 kg

DRUGS (6)
  1. CEFTRIAXONE [Suspect]
     Indication: CHORIOAMNIONITIS
     Dosage: 1 G, ONCE + TRANSPLACENTAL
     Route: 064
  2. CHORPHENIRAMINE [Concomitant]
  3. HYDROCORTISONE [Concomitant]
  4. ADRENALINE [Concomitant]
  5. COLLOID [Concomitant]
  6. CRYSTALLOID SOLUTION [Concomitant]

REACTIONS (9)
  - ANAPHYLACTIC REACTION [None]
  - BASE EXCESS INCREASED [None]
  - CAESAREAN SECTION [None]
  - HYPOXIC ENCEPHALOPATHY [None]
  - INFANTILE APNOEIC ATTACK [None]
  - MATERNAL DRUGS AFFECTING FOETUS [None]
  - NEONATAL DISORDER [None]
  - PREMATURE SEPARATION OF PLACENTA [None]
  - TACHYCARDIA FOETAL [None]
